FAERS Safety Report 7913530-2 (Version None)
Quarter: 2011Q4

REPORT INFORMATION
  Report Type: 
  Country: None (occurrence: None)
  Receive Date: 20111110
  Receipt Date: 20111027
  Transmission Date: 20120403
  Serious: Yes (Hospitalization, Other)
  Sender: FDA-Public Use
  Company Number: 2009AL001696

PATIENT
  Sex: Female
  Weight: 58.9676 kg

DRUGS (81)
  1. DIGOXIN [Suspect]
     Indication: HEART RATE IRREGULAR
     Dosage: 0.25 MG, QD, PO
     Route: 048
     Dates: start: 19990208, end: 20080328
  2. ENALAPRIL MALEATE [Concomitant]
  3. MAGNESIUM OXIDE [Concomitant]
  4. VITAMIN D [Concomitant]
  5. REGLAN [Concomitant]
  6. MAGNESIUM IV [Concomitant]
  7. PREMARIN [Concomitant]
  8. PEPCID [Concomitant]
  9. PROCARDIA [Concomitant]
  10. AUGMENTIN [Concomitant]
  11. NITROFURANTOIN MONOHYDRATE/MACROCRYSTALS [Concomitant]
  12. GLUCO ELITE [Concomitant]
  13. ASPIRIN [Concomitant]
  14. ICAR-C PLUS [Concomitant]
  15. PANTOPRAZOLE [Concomitant]
  16. VITAMIN B-12 [Concomitant]
  17. PENICILLIN [Concomitant]
  18. TAMIFLU [Concomitant]
  19. NITROGLYCERIN [Concomitant]
  20. BACTROBAN [Concomitant]
  21. HYDROCHLOROTHIAZIDE [Concomitant]
  22. NASAREL [Concomitant]
  23. NITROGLYCERIN [Concomitant]
  24. PLAVIX [Concomitant]
  25. CEFADROXYL [Concomitant]
  26. FLAGYL [Concomitant]
  27. GI COCTAIL [Concomitant]
  28. PHENERGAN [Concomitant]
  29. COLYTELY [Concomitant]
  30. GEMFIBROZIL [Concomitant]
  31. LORTUSS DM [Concomitant]
  32. GLIPIZIDE [Concomitant]
  33. VIGAMOX [Concomitant]
  34. IMODIUM [Concomitant]
  35. CENTRUM [Concomitant]
  36. GLUCOPHAGE [Concomitant]
  37. ANEMAGEN [Concomitant]
  38. TOPROL-XL [Concomitant]
  39. AZITHROMYCIN [Concomitant]
  40. NEVANAC [Concomitant]
  41. CIPROFLOXAIN [Concomitant]
  42. LOMOTIL [Concomitant]
  43. LEVAQUIN [Concomitant]
  44. CALCIUM [Concomitant]
  45. LOPRESSOR [Concomitant]
  46. MAGNESIUM SULFATE [Concomitant]
  47. ALLEGRA [Concomitant]
  48. ZYRTEC [Concomitant]
  49. ZYRTEC-D 12 HOUR [Concomitant]
  50. AMOX/K/CLAV [Concomitant]
  51. GLYBURIDE [Concomitant]
  52. GLUCERNA [Concomitant]
  53. OS-CAL [Concomitant]
  54. SYNTHROID [Concomitant]
  55. LEVAQUIN [Concomitant]
  56. UNIMART [Concomitant]
  57. PRINCIPEN [Concomitant]
  58. DIPHEN/ATROP [Concomitant]
  59. JAYCOF-HC [Concomitant]
  60. FINACEA [Concomitant]
  61. METFORMIN HCL [Concomitant]
  62. METOPROLOL [Concomitant]
  63. NIFEDIPINE [Concomitant]
  64. PHENADOZ [Concomitant]
  65. UNITHROID [Concomitant]
  66. SODIUM CHLORIDE [Concomitant]
  67. NITROSTAT [Concomitant]
  68. AMOXICILLIN [Concomitant]
  69. ASCENSIA MICROLET [Concomitant]
  70. PROPO-N/APAP [Concomitant]
  71. ASCENSIA CONTOUR [Concomitant]
  72. LIPITOR [Concomitant]
  73. NEXIUM [Concomitant]
  74. ZANTAC [Concomitant]
  75. ALTACE [Concomitant]
  76. PREVACID [Concomitant]
  77. PROTONIX [Suspect]
  78. VASOTEC [Concomitant]
  79. PANMIST JR [Concomitant]
  80. ASCENSIO ELITE [Concomitant]
  81. FE C [Concomitant]

REACTIONS (51)
  - TOXICITY TO VARIOUS AGENTS [None]
  - ABDOMINAL PAIN UPPER [None]
  - HEART RATE INCREASED [None]
  - HYPONATRAEMIA [None]
  - BLOOD PRESSURE INCREASED [None]
  - ANAEMIA [None]
  - ELECTROCARDIOGRAM ST-T CHANGE [None]
  - ECONOMIC PROBLEM [None]
  - EMOTIONAL DISORDER [None]
  - LARYNGITIS [None]
  - SINUS TACHYCARDIA [None]
  - TRICUSPID VALVE INCOMPETENCE [None]
  - PULMONARY VALVE INCOMPETENCE [None]
  - PAIN [None]
  - GASTRODUODENITIS [None]
  - PALPITATIONS [None]
  - OROPHARYNGEAL PAIN [None]
  - MITRAL VALVE INCOMPETENCE [None]
  - EJECTION FRACTION DECREASED [None]
  - BLOOD GLUCOSE INCREASED [None]
  - VIRAL INFECTION [None]
  - MYOCARDIAL ISCHAEMIA [None]
  - ELECTROCARDIOGRAM ST SEGMENT ABNORMAL [None]
  - RENAL CYST [None]
  - MULTIPLE INJURIES [None]
  - CHEST DISCOMFORT [None]
  - MENTAL DISORDER [None]
  - NOCTURIA [None]
  - ABDOMINAL DISCOMFORT [None]
  - NAUSEA [None]
  - DEHYDRATION [None]
  - ANXIETY [None]
  - HYPOMAGNESAEMIA [None]
  - VERTIGO [None]
  - BLOOD GLUCOSE FLUCTUATION [None]
  - GLOMERULAR FILTRATION RATE DECREASED [None]
  - BLOOD BILIRUBIN INCREASED [None]
  - CHOLELITHIASIS [None]
  - APHAGIA [None]
  - DIARRHOEA [None]
  - ASTHENIA [None]
  - ANHEDONIA [None]
  - URINARY TRACT INFECTION [None]
  - WEIGHT DECREASED [None]
  - FATIGUE [None]
  - DECREASED APPETITE [None]
  - BALANCE DISORDER [None]
  - HYPERKALAEMIA [None]
  - ADDISON'S DISEASE [None]
  - ERUCTATION [None]
  - PULMONARY HYPERTENSION [None]
